FAERS Safety Report 4932399-1 (Version None)
Quarter: 2006Q1

REPORT INFORMATION
  Report Type: 
  Country: None (occurrence: None)
  Receive Date: 20060228
  Receipt Date: 20060215
  Transmission Date: 20060701
  Serious: Yes (Hospitalization)
  Sender: FDA-Public Use
  Company Number: 200610205BYL

PATIENT
  Age: 72 Year
  Sex: Male

DRUGS (3)
  1. ADALAT [Suspect]
     Indication: ESSENTIAL HYPERTENSION
     Dosage: 20 MG, QD, ORAL
     Route: 048
     Dates: start: 20050809
  2. BLOPRESS [Concomitant]
  3. ASPIRIN [Concomitant]

REACTIONS (1)
  - CEREBRAL INFARCTION [None]
